FAERS Safety Report 25391540 (Version 6)
Quarter: 2025Q3

REPORT INFORMATION
  Report Type: Spontaneous
  Country: BR (occurrence: BR)
  Receive Date: 20250603
  Receipt Date: 20250807
  Transmission Date: 20251020
  Serious: Yes (Other)
  Sender: ELI LILLY AND COMPANY
  Company Number: BR-ELI_LILLY_AND_COMPANY-BR202505006320

PATIENT
  Age: 75 Year
  Sex: Female

DRUGS (3)
  1. BASAGLAR [Suspect]
     Active Substance: INSULIN GLARGINE
     Indication: Type 1 diabetes mellitus
     Route: 065
  2. BASAGLAR [Suspect]
     Active Substance: INSULIN GLARGINE
     Dosage: 50 U, EACH MORNING
     Route: 065
  3. INSULIN LISPRO [Suspect]
     Active Substance: INSULIN LISPRO
     Indication: Type 1 diabetes mellitus
     Dosage: 30 U, TID (IN THE MORNING, LUNCH AND AT NIGHT)
     Route: 065

REACTIONS (12)
  - Blood glucose increased [Unknown]
  - Coma [Unknown]
  - Visual impairment [Unknown]
  - Spinal column injury [Unknown]
  - Memory impairment [Unknown]
  - Confusional state [Unknown]
  - Malaise [Unknown]
  - Fall [Unknown]
  - Limb injury [Unknown]
  - Drug ineffective [Unknown]
  - Blood glucose increased [Unknown]
  - Product dose omission issue [Unknown]
